FAERS Safety Report 8269056-2 (Version None)
Quarter: 2012Q2

REPORT INFORMATION
  Report Type: 
  Country: None (occurrence: None)
  Receive Date: 20120409
  Receipt Date: 20120403
  Transmission Date: 20120825
  Serious: Yes (Other)
  Sender: FDA-Public Use
  Company Number: CH-PFIZER INC-2012084578

PATIENT
  Sex: Male

DRUGS (3)
  1. TRAZODONE [Concomitant]
     Dosage: 50 MG, 1X/DAY IN THE EVENING
  2. ZOLOFT [Suspect]
     Dosage: 100 MG, UNK
     Dates: start: 20120101, end: 20120101
  3. ZOLOFT [Suspect]
     Dosage: 50 MG, UNK
     Dates: start: 20120101, end: 20120101

REACTIONS (7)
  - DIPLOPIA [None]
  - GAIT DISTURBANCE [None]
  - VISION BLURRED [None]
  - MUSCULAR WEAKNESS [None]
  - EYELID FUNCTION DISORDER [None]
  - THROAT TIGHTNESS [None]
  - MYOCLONUS [None]
